FAERS Safety Report 6748549-0 (Version None)
Quarter: 2010Q2

REPORT INFORMATION
  Report Type: 
  Country: None (occurrence: None)
  Receive Date: 20100601
  Receipt Date: 20100514
  Transmission Date: 20101027
  Serious: Yes (Hospitalization, Other)
  Sender: FDA-Public Use
  Company Number: US-BAYER-200937153NA

PATIENT
  Age: 49 Year
  Sex: Female
  Weight: 79 kg

DRUGS (7)
  1. YAZ [Suspect]
     Indication: CONTRACEPTION
     Dosage: PFS: JUL-2007 TO 05-NOV-2007
     Route: 048
     Dates: start: 20070801, end: 20071105
  2. LIPITOR [Concomitant]
     Indication: HYPERLIPIDAEMIA
     Dosage: 1994
     Route: 065
  3. UNKNOWN DRUG [Concomitant]
     Indication: BLOOD CHOLESTEROL INCREASED
     Dosage: 1994
     Route: 065
  4. VITAMIN C [Concomitant]
     Route: 065
  5. IBUPROFEN [Concomitant]
     Route: 065
  6. VITAMIN WITH MAGNESIUM [Concomitant]
     Route: 065
  7. CALCIUM CARBONATE [Concomitant]
     Route: 065

REACTIONS (19)
  - ASTHENIA [None]
  - CEREBROVASCULAR ACCIDENT [None]
  - CIRCULATORY COLLAPSE [None]
  - CONFUSIONAL STATE [None]
  - DEEP VEIN THROMBOSIS [None]
  - DYSARTHRIA [None]
  - DYSLEXIA [None]
  - DYSPNOEA [None]
  - FACIAL PALSY [None]
  - FIBRIN D DIMER INCREASED [None]
  - GRIP STRENGTH DECREASED [None]
  - HEMIPARESIS [None]
  - INFLAMMATION [None]
  - MUSCULAR WEAKNESS [None]
  - NERVOUS SYSTEM DISORDER [None]
  - PAIN IN EXTREMITY [None]
  - PULMONARY EMBOLISM [None]
  - SOMNOLENCE [None]
  - THROMBOPHLEBITIS SUPERFICIAL [None]
